FAERS Safety Report 14145407 (Version 1)
Quarter: 2017Q4

REPORT INFORMATION
  Report Type: Spontaneous
  Country: JP (occurrence: JP)
  Receive Date: 20171031
  Receipt Date: 20171031
  Transmission Date: 20180321
  Serious: Yes (Other)
  Sender: FDA-Public Use
  Company Number: JP-SUCAMPO PHARMACEUTICALS, INC.-SPI201701355

PATIENT
  Age: 46 Year
  Sex: Male

DRUGS (6)
  1. GASMOTIN [Concomitant]
     Active Substance: MOSAPRIDE CITRATE
     Dosage: UNK
  2. OMEPRAL [Concomitant]
     Active Substance: OMEPRAZOLE
     Dosage: UNK
  3. UNKNOWN [Concomitant]
     Active Substance: UNSPECIFIED INGREDIENT
  4. AMITIZA [Suspect]
     Active Substance: LUBIPROSTONE
     Dosage: UNK
     Dates: start: 20171017, end: 20171019
  5. OMEPRAL [Concomitant]
     Active Substance: OMEPRAZOLE
     Dosage: UNK
  6. SYMBICORT [Concomitant]
     Active Substance: BUDESONIDE\FORMOTEROL FUMARATE DIHYDRATE
     Dosage: UNK
     Dates: start: 20141201

REACTIONS (1)
  - Paralysis [Recovered/Resolved]

NARRATIVE: CASE EVENT DATE: 20171018
